FAERS Safety Report 25810802 (Version 1)
Quarter: 2025Q3

REPORT INFORMATION
  Report Type: Spontaneous
  Country: QA (occurrence: QA)
  Receive Date: 20250917
  Receipt Date: 20250917
  Transmission Date: 20251020
  Serious: Yes (Hospitalization, Other)
  Sender: HIKMA
  Company Number: QA-HIKMA PHARMACEUTICALS USA INC.-QA-H14001-25-10338

PATIENT
  Age: 58 Year
  Sex: Male

DRUGS (1)
  1. KETAMINE [Suspect]
     Active Substance: KETAMINE
     Indication: Product used for unknown indication
     Route: 042

REACTIONS (4)
  - Cardiogenic shock [Unknown]
  - Myocardial injury [Unknown]
  - Aggression [Unknown]
  - Acute pulmonary oedema [Unknown]
